FAERS Safety Report 19939291 (Version 1)
Quarter: 2021Q4

REPORT INFORMATION
  Report Type: Spontaneous
  Country: ES (occurrence: ES)
  Receive Date: 20211011
  Receipt Date: 20211011
  Transmission Date: 20220303
  Serious: Yes (Other)
  Sender: FDA-Public Use
  Company Number: ES-AEMPS-1012570

PATIENT
  Age: 74 Year
  Sex: Male

DRUGS (13)
  1. RAMIPRIL [Suspect]
     Active Substance: RAMIPRIL
     Indication: Cardiac failure
     Dosage: (2.5 MG C / 24 H)
     Route: 048
     Dates: start: 20210711, end: 20210714
  2. SACUBITRIL\VALSARTAN [Suspect]
     Active Substance: SACUBITRIL\VALSARTAN
     Indication: Cardiac failure
     Dosage: (24.0 MG C / 12 H)
     Route: 048
     Dates: start: 20210601, end: 20210917
  3. MIRTAZAPINE [Concomitant]
     Active Substance: MIRTAZAPINE
     Indication: Persistent depressive disorder
     Dosage: UNK (30.0 MG C / 24 H NOC)
     Route: 048
     Dates: start: 20160608
  4. ELIQUIS [Concomitant]
     Active Substance: APIXABAN
     Indication: Atrial fibrillation
     Dosage: UNK (5.0 MG C / 12 H)
     Route: 048
     Dates: start: 20210224
  5. PANTOPRAZOLE [Concomitant]
     Active Substance: PANTOPRAZOLE
     Indication: Dyspepsia
     Dosage: UNK (20.0 MG OF)
     Route: 048
     Dates: start: 20160219
  6. Furosemida Kern Pharma [Concomitant]
     Indication: Cardiac failure
     Dosage: UNK (40.0 MG OF)
     Route: 048
     Dates: start: 20201211
  7. BISOPROLOL FUMARATE [Concomitant]
     Active Substance: BISOPROLOL FUMARATE
     Indication: Atrial fibrillation
     Dosage: UNK (5.0 MG DECE)
     Route: 048
     Dates: start: 20201201
  8. QUETIAPINE FUMARATE [Concomitant]
     Active Substance: QUETIAPINE FUMARATE
     Indication: Persistent depressive disorder
     Dosage: UNK (100.0 MG CE)
     Route: 048
     Dates: start: 20180719
  9. DIGOXIN [Concomitant]
     Active Substance: DIGOXIN
     Indication: Atrial fibrillation
     Dosage: UNK (0.25 MG C / 24 H - J AND D)
     Route: 048
     Dates: start: 20210119
  10. Eplerenona Normon [Concomitant]
     Indication: Cardiomyopathy acute
     Dosage: UNK (25.0 MG CO)
     Route: 048
     Dates: start: 20201212
  11. LORMETAZEPAM [Concomitant]
     Active Substance: LORMETAZEPAM
     Indication: Insomnia
     Dosage: UNK (1.0 MG C / 24 H NOC)
     Route: 048
     Dates: start: 20180314
  12. ROSUVASTATIN [Concomitant]
     Active Substance: ROSUVASTATIN
     Indication: Product used for unknown indication
     Dosage: UNK (20.0 MG CE)
     Route: 048
     Dates: start: 20210526
  13. DULOXETINE [Concomitant]
     Active Substance: DULOXETINE
     Indication: Persistent depressive disorder
     Dosage: UNK (60.0 MG DECO)
     Route: 048
     Dates: start: 20150804

REACTIONS (4)
  - Hypotension [Recovering/Resolving]
  - Medication error [Recovering/Resolving]
  - Product dispensing error [Recovering/Resolving]
  - Product preparation issue [Recovering/Resolving]

NARRATIVE: CASE EVENT DATE: 20210714
